FAERS Safety Report 5241298-X (Version None)
Quarter: 2007Q1

REPORT INFORMATION
  Report Type: 
  Country: None (occurrence: None)
  Receive Date: 20070215
  Receipt Date: 20070215
  Transmission Date: 20070707
  Serious: Yes (Other)
  Sender: FDA-Public Use
  Company Number: None

PATIENT
  Age: 41 Year
  Sex: Female
  Weight: 54.8852 kg

DRUGS (7)
  1. LEVAQUIN [Suspect]
     Indication: SIALOADENITIS
     Dosage: 750MG 1 TIME DAILY
     Dates: start: 20061202, end: 20061219
  2. TOPROL-XL [Concomitant]
  3. NEXIUM [Concomitant]
  4. AMOXICILLIN [Concomitant]
  5. CEPHALEXIN [Concomitant]
  6. LEVAQUIN [Concomitant]
  7. AVELOX [Concomitant]

REACTIONS (7)
  - ACTIVITIES OF DAILY LIVING IMPAIRED [None]
  - HYPOAESTHESIA [None]
  - IMPAIRED DRIVING ABILITY [None]
  - IMPAIRED WORK ABILITY [None]
  - MYALGIA [None]
  - TENDON PAIN [None]
  - TENDONITIS [None]
